FAERS Safety Report 9008707 (Version 2)
Quarter: 2013Q1

REPORT INFORMATION
  Report Type: Report from Study
  Country: DE (occurrence: DE)
  Receive Date: 20130108
  Receipt Date: 20130108
  Transmission Date: 20140127
  Serious: Yes (Death, Life-Threatening, Hospitalization)
  Sender: FDA-Public Use
  Company Number: DE-ROCHE-752078

PATIENT
  Age: 78 Year
  Sex: Female
  Weight: 70 kg

DRUGS (17)
  1. TEMOZOLOMIDE [Suspect]
     Indication: GLIOBLASTOMA
     Dosage: FREQUENCY: DAILY.LAST DOSE RECEIVED PRIOR TO SAE ON 28 DEC 2010
     Route: 048
  2. BEVACIZUMAB [Suspect]
     Indication: GLIOBLASTOMA
     Route: 042
  3. IRINOTECAN [Suspect]
     Indication: GLIOBLASTOMA
     Route: 042
  4. DEXAMETHASONE [Concomitant]
     Route: 065
     Dates: start: 20101025, end: 20101216
  5. DEXAMETHASONE [Concomitant]
     Route: 065
     Dates: start: 20101217, end: 20101225
  6. DEXAMETHASONE [Concomitant]
     Route: 065
     Dates: start: 20101226, end: 20110103
  7. DEXAMETHASONE [Concomitant]
     Route: 065
     Dates: start: 20110104, end: 20110107
  8. DEXAMETHASONE [Concomitant]
     Route: 065
     Dates: start: 20110108, end: 20110109
  9. DEXAMETHASONE [Concomitant]
     Route: 065
  10. BELOC-ZOK MITE [Concomitant]
  11. PANTOPRAZOLE [Concomitant]
  12. ASS [Concomitant]
  13. ZOFRAN [Concomitant]
     Route: 065
  14. MOVICOL [Concomitant]
     Dosage: TOTAL DAILY DOSE: ONE BAG.
     Route: 065
     Dates: start: 20101119, end: 20110105
  15. HEPARIN [Concomitant]
     Route: 065
     Dates: start: 20101126, end: 20101227
  16. CIPROBAY [Concomitant]
     Route: 065
     Dates: start: 20110107, end: 201101
  17. DIAZEPAM [Concomitant]

REACTIONS (6)
  - Disease progression [Fatal]
  - Pulmonary embolism [Not Recovered/Not Resolved]
  - General physical condition abnormal [Recovered/Resolved with Sequelae]
  - Thrombocytopenia [Recovered/Resolved]
  - Convulsion [Recovered/Resolved]
  - General physical condition abnormal [Not Recovered/Not Resolved]
